FAERS Safety Report 5264118-6 (Version None)
Quarter: 2007Q1

REPORT INFORMATION
  Report Type: 
  Country: None (occurrence: None)
  Receive Date: 20070313
  Receipt Date: 20070309
  Transmission Date: 20070707
  Serious: Yes (Death)
  Sender: FDA-Public Use
  Company Number: DE-BRISTOL-MYERS SQUIBB COMPANY-13709431

PATIENT
  Age: 60 Year
  Sex: Male

DRUGS (2)
  1. TAXOL [Suspect]
     Indication: NON-SMALL CELL LUNG CANCER
     Dates: start: 20020201
  2. CARBOPLATIN [Suspect]
     Indication: NON-SMALL CELL LUNG CANCER

REACTIONS (4)
  - DEATH [None]
  - NAUSEA [None]
  - PARAESTHESIA [None]
  - VERTIGO [None]
